FAERS Safety Report 6741556-3 (Version None)
Quarter: 2010Q2

REPORT INFORMATION
  Report Type: 
  Country: None (occurrence: None)
  Receive Date: 20100526
  Receipt Date: 20100514
  Transmission Date: 20101027
  Serious: Yes (Hospitalization)
  Sender: FDA-Public Use
  Company Number: BR-ABBOTT-10P-020-0645252-00

PATIENT
  Sex: Female
  Weight: 58 kg

DRUGS (10)
  1. HUMIRA [Suspect]
     Indication: CROHN'S DISEASE
     Dosage: INDUCTION DOSE 160 MG
     Route: 058
     Dates: start: 20100201, end: 20100201
  2. HUMIRA [Suspect]
     Dosage: SECOND DOSE 80 MG, 14 DAYS LATER
     Dates: start: 20100215, end: 20100215
  3. HUMIRA [Suspect]
  4. PREDNISONE TAB [Concomitant]
     Indication: CROHN'S DISEASE
     Route: 048
  5. MESALAZINE [Concomitant]
     Indication: CROHN'S DISEASE
     Route: 048
  6. DEPAKOTE ER [Concomitant]
     Indication: GASTROINTESTINAL DISORDER
     Route: 050
  7. VENLAFAXINE [Concomitant]
     Indication: GASTROINTESTINAL DISORDER
     Route: 048
  8. SEROQUEL [Concomitant]
     Indication: GASTROINTESTINAL DISORDER
     Route: 048
  9. SEROQUEL [Concomitant]
     Route: 048
  10. RIVOTRIL [Concomitant]
     Indication: INSOMNIA
     Route: 048

REACTIONS (2)
  - HAEMORRHAGE [None]
  - PYREXIA [None]
